FAERS Safety Report 21633852 (Version 2)
Quarter: 2022Q4

REPORT INFORMATION
  Report Type: Report from Study
  Country: AT (occurrence: AT)
  Receive Date: 20221123
  Receipt Date: 20221212
  Transmission Date: 20230113
  Serious: Yes (Hospitalization, Other)
  Sender: FDA-Public Use
  Company Number: AT-TAKEDA-2022TUS086918

PATIENT
  Sex: Female
  Weight: 65 kg

DRUGS (15)
  1. PARATHYROID HORMONE [Suspect]
     Active Substance: PARATHYROID HORMONE
     Indication: Hypoparathyroidism
     Dosage: 75 MICROGRAM, QD
     Route: 058
     Dates: start: 20191208
  2. PARATHYROID HORMONE [Suspect]
     Active Substance: PARATHYROID HORMONE
     Indication: Hypoparathyroidism
     Dosage: 75 MICROGRAM, QD
     Route: 058
     Dates: start: 20191208
  3. PARATHYROID HORMONE [Suspect]
     Active Substance: PARATHYROID HORMONE
     Indication: Hypoparathyroidism
     Dosage: 75 MICROGRAM, QD
     Route: 058
     Dates: start: 20191208
  4. LEVOTHYROXINE [Concomitant]
     Active Substance: LEVOTHYROXINE
     Indication: Thyroidectomy
     Dosage: UNK
     Route: 048
     Dates: start: 201812
  5. UNSPECIFIED INGREDIENT [Concomitant]
     Active Substance: UNSPECIFIED INGREDIENT
     Indication: Pancreatitis
     Dosage: UNK
     Route: 048
     Dates: start: 202206
  6. MEROPENEM [Concomitant]
     Active Substance: MEROPENEM
     Indication: Pancreatitis
     Dosage: UNK
     Route: 042
     Dates: start: 202206, end: 202207
  7. PANTOPRAZOLE SODIUM [Concomitant]
     Active Substance: PANTOPRAZOLE SODIUM
     Indication: Prophylaxis
     Dosage: UNK
     Route: 048
     Dates: start: 202206
  8. POTASSIUM [Concomitant]
     Active Substance: POTASSIUM
     Indication: Hypokalaemia
     Dosage: UNK
     Route: 048
     Dates: start: 202206, end: 202207
  9. VITAMIN D [Concomitant]
     Active Substance: VITAMIN D NOS
     Dosage: 1600 INTERNATIONAL UNIT, QD
     Route: 065
     Dates: start: 201812, end: 202104
  10. VITAMIN D [Concomitant]
     Active Substance: VITAMIN D NOS
     Dosage: 4000 INTERNATIONAL UNIT, QD
     Route: 065
     Dates: start: 202104
  11. CALCITRIOL [Concomitant]
     Active Substance: CALCITRIOL
     Dosage: 0.25 MICROGRAM, BID
     Route: 065
     Dates: start: 20190527, end: 20190711
  12. CALCITRIOL [Concomitant]
     Active Substance: CALCITRIOL
     Dosage: 05 MICROGRAM, BID
     Route: 065
     Dates: start: 20190711, end: 20191208
  13. CALCITRIOL [Concomitant]
     Active Substance: CALCITRIOL
     Dosage: 0.25 MICROGRAM, QD
     Route: 065
     Dates: start: 201912, end: 202003
  14. CALCITRIOL [Concomitant]
     Active Substance: CALCITRIOL
     Dosage: 0.25 MICROGRAM, QD
     Route: 065
     Dates: start: 202201
  15. MAGNESIUM [Concomitant]
     Active Substance: MAGNESIUM
     Dosage: 500 MILLIGRAM, QD
     Route: 065
     Dates: start: 202001

REACTIONS (1)
  - Pancreatitis acute [Recovered/Resolved]

NARRATIVE: CASE EVENT DATE: 20220601
